FAERS Safety Report 14341395 (Version 1)
Quarter: 2018Q1

REPORT INFORMATION
  Report Type: Spontaneous
  Country: US (occurrence: US)
  Receive Date: 20180102
  Receipt Date: 20180102
  Transmission Date: 20180509
  Serious: No
  Sender: FDA-Public Use
  Company Number: US-009507513-1712USA012910

PATIENT
  Age: 67 Year
  Sex: Male
  Weight: 203 kg

DRUGS (11)
  1. MIRTAZAPINE. [Concomitant]
     Active Substance: MIRTAZAPINE
     Route: 048
  2. GINGER. [Concomitant]
     Active Substance: GINGER
  3. FLECAINIDE [Concomitant]
     Active Substance: FLECAINIDE
  4. OMEGA-3 MARINE TRIGLYCERIDES [Concomitant]
     Active Substance: FISH OIL
  5. PEPPERMINT. [Concomitant]
     Active Substance: PEPPERMINT
  6. GABAPENTIN. [Concomitant]
     Active Substance: GABAPENTIN
  7. ASCORBIC ACID. [Concomitant]
     Active Substance: ASCORBIC ACID
  8. ZEPATIER [Suspect]
     Active Substance: ELBASVIR\GRAZOPREVIR
     Indication: HEPATITIS C
     Dosage: 1 DF, QD
     Route: 048
     Dates: start: 20171206
  9. METOPROLOL. [Concomitant]
     Active Substance: METOPROLOL
  10. WARFARIN [Concomitant]
     Active Substance: WARFARIN
  11. MVI (ASCORBIC ACID (+) ERGOCALCIFEROL (+) VITAMIN A PALMITATE (+) VITA [Concomitant]

REACTIONS (2)
  - Abdominal pain upper [Recovered/Resolved]
  - Dyspepsia [Recovered/Resolved]

NARRATIVE: CASE EVENT DATE: 20171210
